FAERS Safety Report 8969027 (Version 1)
Quarter: 2012Q4

REPORT INFORMATION
  Report Type: Spontaneous
  Country: AR (occurrence: None)
  Receive Date: 20121210
  Receipt Date: 20121210
  Transmission Date: 20130627
  Serious: Yes (Other)
  Sender: FDA-Public Use
  Company Number: 2012RR-62144

PATIENT
  Age: 56 Year
  Sex: Female

DRUGS (16)
  1. VALPROIC ACID [Suspect]
     Indication: GRAND MAL CONVULSION
     Dosage: 15 mg/kg, loading dose, Intravenous
     Route: 042
  2. VALPROIC ACID [Suspect]
     Route: 042
  3. VALPROIC ACID [Suspect]
     Dosage: an additional loading dose, Intravenous
     Route: 042
  4. VANCOMYCIN [Suspect]
  5. MEROPENEM [Suspect]
  6. PHENYTOIN [Suspect]
  7. IMIPENEM [Suspect]
  8. FLUCONAZOLE [Suspect]
  9. METRONIDAZOLE [Suspect]
  10. PHENOBARBITAL [Concomitant]
  11. LEVETIRACETAM [Concomitant]
  12. CEFTRIAXONE [Concomitant]
  13. GENTAMICIN [Concomitant]
  14. VANCOMYCIN [Concomitant]
  15. METRONIDAZOLE [Concomitant]
  16. METHYLPREDNISOLONE [Concomitant]

REACTIONS (6)
  - Anticonvulsant drug level decreased [None]
  - Status epilepticus [None]
  - Drug interaction [None]
  - Multi-organ failure [None]
  - Sepsis [None]
  - Depressed level of consciousness [None]
